FAERS Safety Report 5718250-0 (Version None)
Quarter: 2008Q2

REPORT INFORMATION
  Report Type: 
  Country: None (occurrence: None)
  Receive Date: 20080425
  Receipt Date: 20080416
  Transmission Date: 20081010
  Serious: Yes (Death, Hospitalization)
  Sender: FDA-Public Use
  Company Number: FR-ABBOTT-07P-056-0356264-00

PATIENT
  Sex: Female
  Weight: 58 kg

DRUGS (22)
  1. HUMIRA [Suspect]
     Indication: RHEUMATOID ARTHRITIS
     Route: 058
     Dates: start: 20040212, end: 20061113
  2. MORPHINE SULFATE [Concomitant]
     Indication: ARTHRALGIA
     Route: 048
     Dates: start: 20021201
  3. RISEDRONATE SODIUM [Concomitant]
     Indication: OSTEOPOROSIS PROPHYLAXIS
     Route: 048
     Dates: end: 20061113
  4. PREDNISONE [Concomitant]
     Indication: RHEUMATOID ARTHRITIS
     Route: 048
     Dates: start: 20021201
  5. DILLU K [Concomitant]
     Indication: VITAMIN K DEFICIENCY
     Route: 048
     Dates: start: 19990101
  6. METHOTREXATE [Concomitant]
     Indication: RHEUMATOID ARTHRITIS
     Route: 048
     Dates: start: 20010301, end: 20010901
  7. METHOTREXATE [Concomitant]
     Dates: start: 20021201
  8. LEFLUNOMIDE [Concomitant]
     Indication: RHEUMATOID ARTHRITIS
     Route: 048
     Dates: start: 20010901, end: 20011101
  9. FOLIC ACID [Concomitant]
     Indication: VITAMIN SUPPLEMENTATION
     Dates: start: 20010301
  10. OMEPRAZOLE [Concomitant]
     Indication: PROPHYLAXIS AGAINST GASTROINTESTINAL ULCER
     Route: 048
     Dates: start: 19990101, end: 20061113
  11. FUROSEMIDE [Concomitant]
     Indication: HYPERTENSION
     Route: 048
     Dates: start: 19990101, end: 20061113
  12. SELOHEN [Concomitant]
     Indication: HYPERTENSION
     Route: 048
     Dates: start: 19990101, end: 20061113
  13. LEKOVIT CA [Concomitant]
     Indication: MINERAL SUPPLEMENTATION
     Dosage: 1 BAG
     Dates: start: 19990101
  14. CLONAZEPAM [Concomitant]
     Indication: ANXIETY
     Route: 048
     Dates: start: 20031226
  15. MORPHINE SULFATE [Concomitant]
     Route: 048
     Dates: start: 20030226, end: 20030514
  16. FLUINDIONE [Concomitant]
     Indication: PULMONARY EMBOLISM
     Route: 048
     Dates: start: 20020101, end: 20061113
  17. INSULATARD NPH [Concomitant]
     Indication: DIABETES MELLITUS
     Route: 058
     Dates: start: 20020101, end: 20061113
  18. TOPALGIC LP [Concomitant]
     Indication: ARTHRALGIA
     Route: 048
     Dates: start: 20021201
  19. NOROXIN [Concomitant]
     Indication: CYSTITIS
     Route: 048
     Dates: start: 20030422, end: 20030429
  20. CC ANOXYL [Concomitant]
     Indication: URINARY TRACT INFECTION
     Route: 048
     Dates: start: 20031022, end: 20031028
  21. CC ANOXYL [Concomitant]
     Indication: RHINITIS
  22. COMMERCIAL HUMIRA [Concomitant]
     Indication: RHEUMATOID ARTHRITIS
     Route: 058
     Dates: start: 20030627

REACTIONS (1)
  - MYOCARDIAL INFARCTION [None]
